FAERS Safety Report 16456300 (Version 2)
Quarter: 2019Q4

REPORT INFORMATION
  Report Type: Spontaneous
  Country: DE (occurrence: DE)
  Receive Date: 20190620
  Receipt Date: 20191022
  Transmission Date: 20200122
  Serious: Yes (Hospitalization, Other)
  Sender: FDA-Public Use
  Company Number: DE-TAKEDA-2019TUS033292

PATIENT
  Age: 58 Year
  Sex: Male
  Weight: 103 kg

DRUGS (12)
  1. IBUFLAM                            /00109201/ [Concomitant]
     Active Substance: IBUPROFEN
     Indication: ANKYLOSING SPONDYLITIS
     Dosage: 800 MILLIGRAM, BID
  2. TRAMADOL. [Concomitant]
     Active Substance: TRAMADOL
     Indication: ANKYLOSING SPONDYLITIS
     Dosage: 150 MILLIGRAM, QD
  3. NOVAMINSULFON [Concomitant]
     Active Substance: METAMIZOLE
     Indication: ANKYLOSING SPONDYLITIS
     Dosage: 500 MILLIGRAM
  4. HUMIRA [Concomitant]
     Active Substance: ADALIMUMAB
     Indication: ANKYLOSING SPONDYLITIS
     Dosage: UNK
     Dates: start: 201504, end: 201904
  5. SALOFALK                           /00747601/ [Concomitant]
     Active Substance: MESALAMINE
     Dosage: UNK
  6. OMEPRAZOLE. [Concomitant]
     Active Substance: OMEPRAZOLE
  7. RAMIPRIL. [Concomitant]
     Active Substance: RAMIPRIL
     Dosage: UNK
  8. SULFASALAZINE. [Concomitant]
     Active Substance: SULFASALAZINE
     Dosage: UNK
  9. KALINOR                            /00031402/ [Concomitant]
     Active Substance: POTASSIUM CHLORIDE
     Dosage: UNK
  10. ENTYVIO [Suspect]
     Active Substance: VEDOLIZUMAB
     Indication: COLITIS ULCERATIVE
     Dosage: 300 MILLIGRAM
     Route: 042
     Dates: start: 20190410, end: 20190425
  11. HCT [Concomitant]
     Active Substance: HYDROCHLOROTHIAZIDE
     Dosage: UNK
  12. DEKRISTOL [Concomitant]
     Active Substance: CHOLECALCIFEROL
     Dosage: UNK

REACTIONS (4)
  - Cerebrovascular accident [Unknown]
  - Cardiac disorder [Unknown]
  - Gamma-glutamyltransferase increased [Unknown]
  - Seizure [Unknown]

NARRATIVE: CASE EVENT DATE: 201906
